FAERS Safety Report 15317232 (Version 1)
Quarter: 2018Q3

REPORT INFORMATION
  Report Type: Spontaneous
  Country: US (occurrence: US)
  Receive Date: 20180816
  Receipt Date: 20180816
  Transmission Date: 20181010
  Serious: Yes (Death)
  Sender: FDA-Public Use
  Company Number: None

PATIENT
  Age: 89 Year
  Sex: Female
  Weight: 52.2 kg

DRUGS (1)
  1. VALSARTAN. [Suspect]
     Active Substance: VALSARTAN
     Indication: BLOOD PRESSURE MEASUREMENT

REACTIONS (11)
  - Dyspnoea [None]
  - Lung carcinoma cell type unspecified stage IV [None]
  - Blood pressure inadequately controlled [None]
  - Respiratory disorder [None]
  - Balance disorder [None]
  - Loss of personal independence in daily activities [None]
  - Renal disorder [None]
  - Weight decreased [None]
  - Blood pressure increased [None]
  - Cardiac disorder [None]
  - Feeling abnormal [None]

NARRATIVE: CASE EVENT DATE: 20170901
